FAERS Safety Report 4851379-8 (Version None)
Quarter: 2005Q4

REPORT INFORMATION
  Report Type: 
  Country: None (occurrence: None)
  Receive Date: 20051212
  Receipt Date: 20051128
  Transmission Date: 20060501
  Serious: Yes (Hospitalization)
  Sender: FDA-Public Use
  Company Number: PHEH2005US12920

PATIENT
  Age: 44 Year
  Sex: Female
  Weight: 81.179 kg

DRUGS (8)
  1. DIOVAN [Suspect]
     Indication: HYPERTENSION
     Dosage: 80 MG, QD
     Route: 048
     Dates: start: 20051114, end: 20051120
  2. METOPROLOL [Concomitant]
     Indication: HYPERTENSION
     Dosage: 25 UNK, BID
  3. AMARYL [Concomitant]
     Indication: DIABETES MELLITUS
     Dosage: 2 MG IN AM AND PM
  4. PROZAC [Concomitant]
     Indication: DEPRESSION
     Dosage: 20 MG, QD
  5. ALLEGRA [Concomitant]
     Indication: HYPERSENSITIVITY
     Dosage: 180 UNK, QD
  6. VYTORIN [Concomitant]
     Indication: HYPERLIPIDAEMIA
     Dosage: 10/40 DAILY
  7. ASPIRIN [Concomitant]
     Dosage: 162 MG, QD
  8. ANTIGLAUCOMA PREPARATIONS AND MIOTICS [Concomitant]
     Indication: GLAUCOMA

REACTIONS (19)
  - ABDOMINAL PAIN [None]
  - ABDOMINAL TENDERNESS [None]
  - BLOOD GLUCOSE INCREASED [None]
  - CARBON DIOXIDE ABNORMAL [None]
  - CHEST PAIN [None]
  - DIARRHOEA [None]
  - DISCOMFORT [None]
  - DIZZINESS [None]
  - ELECTROCARDIOGRAM ABNORMAL [None]
  - ELECTROCARDIOGRAM POOR R-WAVE PROGRESSION [None]
  - GASTROENTERITIS [None]
  - HEART RATE INCREASED [None]
  - LIPASE INCREASED [None]
  - MALAISE [None]
  - NAUSEA [None]
  - NEUTROPHIL COUNT INCREASED [None]
  - PLATELET COUNT INCREASED [None]
  - VOMITING [None]
  - WHITE BLOOD CELL COUNT INCREASED [None]
